FAERS Safety Report 5993066-9 (Version None)
Quarter: 2008Q4

REPORT INFORMATION
  Report Type: 
  Country: None (occurrence: None)
  Receive Date: 20081212
  Receipt Date: 20081209
  Transmission Date: 20090506
  Serious: Yes (Hospitalization)
  Sender: FDA-Public Use
  Company Number: US-BRISTOL-MYERS SQUIBB COMPANY-14438212

PATIENT
  Age: 51 Year
  Sex: Male
  Weight: 96 kg

DRUGS (1)
  1. CISPLATIN [Suspect]
     Indication: HEAD AND NECK CANCER
     Dosage: FIRST COURSE STARTED ON 07OCT2008.
     Dates: start: 20081028, end: 20081028

REACTIONS (5)
  - DEHYDRATION [None]
  - NAUSEA [None]
  - OPPORTUNISTIC INFECTION [None]
  - VOMITING [None]
  - WEIGHT DECREASED [None]
